FAERS Safety Report 11735281 (Version 1)
Quarter: 2015Q4

REPORT INFORMATION
  Report Type: Spontaneous
  Country: US (occurrence: US)
  Receive Date: 20151113
  Receipt Date: 20151113
  Transmission Date: 20160304
  Serious: Yes (Hospitalization)
  Sender: FDA-Public Use
  Company Number: US-SA-2015SA177929

PATIENT
  Sex: Female

DRUGS (6)
  1. BLINDED THERAPY [Suspect]
     Active Substance: INVESTIGATIONAL PRODUCT
     Indication: SQUAMOUS CELL CARCINOMA OF THE ORAL CAVITY
     Route: 048
     Dates: start: 20150128, end: 20150223
  2. LEVAQUIN [Concomitant]
     Active Substance: LEVOFLOXACIN
  3. FLAGYL [Concomitant]
     Active Substance: METRONIDAZOLE\METRONIDAZOLE HYDROCHLORIDE
  4. TAXOTERE [Suspect]
     Active Substance: DOCETAXEL
     Indication: SQUAMOUS CELL CARCINOMA OF THE ORAL CAVITY
     Route: 042
     Dates: start: 20150128
  5. CARBOPLATIN. [Suspect]
     Active Substance: CARBOPLATIN
     Indication: SQUAMOUS CELL CARCINOMA OF THE ORAL CAVITY
     Dosage: DOSE:  AUC 6
     Route: 042
     Dates: start: 20150128
  6. NEULASTA [Concomitant]
     Active Substance: PEGFILGRASTIM
     Dates: start: 20150219

REACTIONS (3)
  - Platelet count decreased [Recovered/Resolved]
  - Neutrophil count decreased [Recovered/Resolved]
  - Colitis [Recovered/Resolved]

NARRATIVE: CASE EVENT DATE: 20150224
